FAERS Safety Report 16819059 (Version 1)
Quarter: 2019Q3

REPORT INFORMATION
  Report Type: Report from Study
  Country: US (occurrence: US)
  Receive Date: 20190917
  Receipt Date: 20190917
  Transmission Date: 20191005
  Serious: Yes (Other)
  Sender: FDA-Public Use
  Company Number: US-BRISTOL-MYERS SQUIBB COMPANY-BMS-2019-087644

PATIENT
  Age: 62 Year

DRUGS (1)
  1. ABATACEPT [Suspect]
     Active Substance: ABATACEPT
     Indication: PRODUCT USED FOR UNKNOWN INDICATION
     Route: 065

REACTIONS (9)
  - Chronic obstructive pulmonary disease [Unknown]
  - Type 2 diabetes mellitus [Unknown]
  - Arteriosclerosis coronary artery [Unknown]
  - Essential hypertension [Unknown]
  - Atrial fibrillation [Unknown]
  - Pericarditis [Unknown]
  - Troponin increased [Unknown]
  - Tobacco abuse [Unknown]
  - Leukocytosis [Unknown]

NARRATIVE: CASE EVENT DATE: 20190905
